FAERS Safety Report 18502200 (Version 1)
Quarter: 2020Q4

REPORT INFORMATION
  Report Type: Spontaneous
  Country: RO (occurrence: RO)
  Receive Date: 20201113
  Receipt Date: 20201113
  Transmission Date: 20210114
  Serious: Yes (Other)
  Sender: FDA-Public Use
  Company Number: RO-PFIZER INC-2020428697

PATIENT
  Age: 58 Year
  Sex: Male

DRUGS (4)
  1. MEDROL [Suspect]
     Active Substance: METHYLPREDNISOLONE
     Indication: PSORIATIC ARTHROPATHY
     Dosage: 8/4 MG, 1X/DAY, INTERMITTENT
  2. LEFLUNOMIDE. [Concomitant]
     Active Substance: LEFLUNOMIDE
     Indication: PSORIATIC ARTHROPATHY
     Dosage: 20 MG, 1X/DAY
  3. METHOTREXATE. [Concomitant]
     Active Substance: METHOTREXATE
     Indication: PSORIATIC ARTHROPATHY
     Dosage: 20 MG, WEEKLY
     Route: 058
  4. ACIFOL [FOLIC ACID] [Concomitant]
     Indication: PSORIATIC ARTHROPATHY
     Dosage: 10 MG, WEEKLY

REACTIONS (1)
  - Interferon gamma release assay positive [Unknown]
